FAERS Safety Report 21910532 (Version 2)
Quarter: 2023Q2

REPORT INFORMATION
  Report Type: Spontaneous
  Country: US (occurrence: US)
  Receive Date: 20230125
  Receipt Date: 20230629
  Transmission Date: 20230722
  Serious: Yes (Other)
  Sender: FDA-Public Use
  Company Number: US-JNJFOC-20230146609

PATIENT
  Age: 2 Year
  Sex: Male

DRUGS (3)
  1. TYLENOL REGULAR STRENGTH [Suspect]
     Active Substance: ACETAMINOPHEN
     Indication: Product used for unknown indication
     Dosage: FROM UNSPECIFIED DATES IN OCT-2016 TO IN JUL-2017, THE PATIENTS MOTHER TOOK TYLENOL REGULAR TABLETS
     Route: 064
     Dates: start: 201610, end: 201707
  2. TYLENOL EXTRA STRENGTH [Suspect]
     Active Substance: ACETAMINOPHEN
     Indication: Product used for unknown indication
     Dosage: FROM UNSPECIFIED DATES IN OCT-2016 TO IN JUL-2017, THE PATIENTS MOTHER TOOK TYLENOL EXTRA STRENGTH
     Route: 064
     Dates: start: 201610, end: 201707
  3. ACETAMINOPHEN [Suspect]
     Active Substance: ACETAMINOPHEN
     Indication: Product used for unknown indication
     Dosage: FROM UNSPECIFIED DATES IN OCT-2016 TO IN JUL-2017, THE PATIENTS MOTHER TOOK CVS HEALTH ACETAMINOPHE
     Route: 064
     Dates: start: 201610, end: 201707

REACTIONS (2)
  - Autism spectrum disorder [Unknown]
  - Foetal exposure during pregnancy [Unknown]

NARRATIVE: CASE EVENT DATE: 20200501
